FAERS Safety Report 5489202-3 (Version None)
Quarter: 2007Q4

REPORT INFORMATION
  Report Type: 
  Country: None (occurrence: None)
  Receive Date: 20071016
  Receipt Date: 20071011
  Transmission Date: 20080405
  Serious: Yes (Hospitalization)
  Sender: FDA-Public Use
  Company Number: A700151005

PATIENT
  Age: 68 Year
  Sex: Female

DRUGS (1)
  1. DILTIAZEM HCL [Suspect]
     Indication: CONGESTIVE CARDIOMYOPATHY

REACTIONS (3)
  - BACK PAIN [None]
  - COUGH [None]
  - DYSPNOEA [None]
